FAERS Safety Report 5775924-3 (Version None)
Quarter: 2008Q2

REPORT INFORMATION
  Report Type: 
  Country: None (occurrence: None)
  Receive Date: 20080601
  Receipt Date: 20080306
  Transmission Date: 20081010
  Serious: No
  Sender: FDA-Public Use
  Company Number: 2006PV022609

PATIENT
  Age: 56 Year
  Sex: Female
  Weight: 86.2 kg

DRUGS (14)
  1. EXENATIDE(EXENATIDE) PEN,DISPOSABLE [Suspect]
     Indication: TYPE 2 DIABETES MELLITUS
     Dosage: 5 UG, 2/D, SUBCUTANEOUS ; 10 UG, 2/D, SUBCUTANEOUS
     Route: 058
     Dates: start: 20060803, end: 20061101
  2. EXENATIDE(EXENATIDE) PEN,DISPOSABLE [Suspect]
     Indication: TYPE 2 DIABETES MELLITUS
     Dosage: 5 UG, 2/D, SUBCUTANEOUS ; 10 UG, 2/D, SUBCUTANEOUS
     Route: 058
     Dates: start: 20061101, end: 20080227
  3. EXENATIDE(EXENATIDE) PEN,DISPOSABLE [Suspect]
  4. LANTUS [Concomitant]
  5. NOVOLOG [Concomitant]
  6. DEPO-TESTOSTERONE [Concomitant]
  7. INSULIN NOVOLIN 70/30 INJECTION [Concomitant]
  8. NEXIUM TABLET [Concomitant]
  9. ALTACE [Concomitant]
  10. POTASSIUM CHLORIDE [Concomitant]
  11. MAXZIDE [Concomitant]
  12. PLAVX (CLOPIDOGREL SULFATE) [Concomitant]
  13. ESTROTAB (ETHINYLESTRADIOL) [Concomitant]
  14. SYNTHROID [Concomitant]

REACTIONS (8)
  - BLOOD GLUCOSE DECREASED [None]
  - BLOOD GLUCOSE INCREASED [None]
  - DECREASED APPETITE [None]
  - HEADACHE [None]
  - NAUSEA [None]
  - NERVOUSNESS [None]
  - THERAPEUTIC RESPONSE UNEXPECTED [None]
  - WEIGHT DECREASED [None]
